FAERS Safety Report 12728956 (Version 1)
Quarter: 2016Q3

REPORT INFORMATION
  Report Type: Report from Study
  Country: ES (occurrence: ES)
  Receive Date: 20160909
  Receipt Date: 20160909
  Transmission Date: 20161109
  Serious: Yes (Death, Other)
  Sender: FDA-Public Use
  Company Number: ES-AMGEN-ESPNI2016121129

PATIENT
  Age: 33 Year
  Sex: Male

DRUGS (1)
  1. BLINATUMOMAB [Suspect]
     Active Substance: BLINATUMOMAB
     Indication: PRODUCT USED FOR UNKNOWN INDICATION
     Dosage: UNK
     Route: 065
     Dates: start: 20160112, end: 20160120

REACTIONS (3)
  - Drug ineffective [Unknown]
  - Death [Fatal]
  - Disease recurrence [Unknown]

NARRATIVE: CASE EVENT DATE: 20160717
